FAERS Safety Report 5422180-1 (Version None)
Quarter: 2007Q3

REPORT INFORMATION
  Report Type: 
  Country: None (occurrence: None)
  Receive Date: 20070822
  Receipt Date: 20070821
  Transmission Date: 20080115
  Serious: Yes (Hospitalization)
  Sender: FDA-Public Use
  Company Number: DE-BRISTOL-MYERS SQUIBB COMPANY-13864772

PATIENT
  Age: 66 Year
  Sex: Female
  Weight: 66 kg

DRUGS (7)
  1. TAXOL [Suspect]
     Indication: BREAST CANCER
     Route: 042
     Dates: start: 20070730
  2. EPIRUBICIN [Suspect]
     Indication: BREAST CANCER
     Route: 042
     Dates: start: 20070614, end: 20070716
  3. ZOFRAN [Concomitant]
     Route: 042
     Dates: start: 20070614
  4. FORTECORTIN [Concomitant]
     Route: 042
     Dates: start: 20070614
  5. NEORECORMON [Concomitant]
     Route: 058
     Dates: start: 20070614
  6. NEULASTA [Concomitant]
     Route: 058
     Dates: start: 20070614
  7. PLASTULEN [Concomitant]
     Route: 048
     Dates: start: 20070614

REACTIONS (1)
  - ANAEMIA [None]
